FAERS Safety Report 17859624 (Version 1)
Quarter: 2020Q2

REPORT INFORMATION
  Report Type: Spontaneous
  Country: US (occurrence: US)
  Receive Date: 20200604
  Receipt Date: 20200604
  Transmission Date: 20200714
  Serious: No
  Sender: FDA-Public Use
  Company Number: US-ZYLA LIFE SCIENCES-US-2019EGA001679

PATIENT
  Age: 43 Year
  Sex: Female

DRUGS (1)
  1. SPRIX [Suspect]
     Active Substance: KETOROLAC TROMETHAMINE
     Indication: MIGRAINE
     Dosage: 15.75 MG SPRAY
     Dates: start: 20190802, end: 20190927

REACTIONS (5)
  - Swelling face [Unknown]
  - Swollen tongue [Unknown]
  - Off label use [Recovered/Resolved]
  - Oropharyngeal pain [Unknown]
  - Nasal discomfort [Recovered/Resolved]

NARRATIVE: CASE EVENT DATE: 201908
